FAERS Safety Report 25253301 (Version 4)
Quarter: 2025Q2

REPORT INFORMATION
  Report Type: Spontaneous
  Country: JP (occurrence: JP)
  Receive Date: 20250430
  Receipt Date: 20250626
  Transmission Date: 20250716
  Serious: Yes (Other)
  Sender: GALDERMA
  Company Number: JP-GALDERMA-JP2025005210

PATIENT

DRUGS (11)
  1. NEMOLIZUMAB [Suspect]
     Active Substance: NEMOLIZUMAB
     Indication: Neurodermatitis
     Route: 058
     Dates: start: 20250310, end: 20250310
  2. NEMOLIZUMAB [Suspect]
     Active Substance: NEMOLIZUMAB
     Route: 058
     Dates: start: 20250414, end: 20250414
  3. NEMOLIZUMAB [Suspect]
     Active Substance: NEMOLIZUMAB
     Route: 058
     Dates: start: 20250512, end: 20250512
  4. Heparinoid [Concomitant]
     Indication: Neurodermatitis
     Route: 061
     Dates: start: 20240926
  5. Heparinoid [Concomitant]
     Route: 061
     Dates: start: 20241209, end: 202504
  6. Heparinoid [Concomitant]
     Route: 061
     Dates: start: 202504
  7. BILASTINE [Concomitant]
     Active Substance: BILASTINE
     Indication: Neurodermatitis
     Route: 048
     Dates: start: 20240926
  8. BILASTINE [Concomitant]
     Active Substance: BILASTINE
     Route: 048
     Dates: start: 20241209
  9. RINDERON VG [Concomitant]
     Active Substance: BETAMETHASONE VALERATE\GENTAMICIN SULFATE
     Indication: Neurodermatitis
     Route: 061
     Dates: start: 20240926, end: 20250403
  10. DESLORATADINE [Concomitant]
     Active Substance: DESLORATADINE
     Indication: Product used for unknown indication
     Route: 048
     Dates: start: 20241209
  11. LOCOID [Concomitant]
     Active Substance: HYDROCORTISONE BUTYRATE
     Indication: Neurodermatitis
     Route: 061
     Dates: start: 20241209, end: 20250403

REACTIONS (1)
  - Dermatitis exfoliative generalised [Recovering/Resolving]

NARRATIVE: CASE EVENT DATE: 20250403
